FAERS Safety Report 18791268 (Version 1)
Quarter: 2021Q1

REPORT INFORMATION
  Report Type: Spontaneous
  Country: US (occurrence: US)
  Receive Date: 20210126
  Receipt Date: 20210126
  Transmission Date: 20210419
  Serious: No
  Sender: FDA-Public Use
  Company Number: US-PFIZER INC-2020475645

PATIENT
  Age: 56 Year
  Sex: Male

DRUGS (2)
  1. INLYTA [Suspect]
     Active Substance: AXITINIB
     Dosage: 7 MG, 2X/DAY (1 TABLET (5MG), TWICE A DAY AND 2 TABLETS (1 MG), TWICE A DAY)
     Route: 048
     Dates: start: 202012
  2. INLYTA [Suspect]
     Active Substance: AXITINIB
     Indication: RENAL CANCER
     Dosage: 5 MG, 2X/DAY (TAKE 1 TABLET (5MG) BY MOUTH EVERY 12 HOURS)
     Route: 048
     Dates: start: 202010

REACTIONS (1)
  - Blister [Unknown]
